FAERS Safety Report 5942475-2 (Version None)
Quarter: 2008Q4

REPORT INFORMATION
  Report Type: 
  Country: None (occurrence: None)
  Receive Date: 20081105
  Receipt Date: 20081024
  Transmission Date: 20090506
  Serious: Yes (Life-Threatening, Hospitalization, Disabling, Other)
  Sender: FDA-Public Use
  Company Number: GB-PFIZER INC-2008082358

PATIENT
  Age: 19 Year
  Sex: Male

DRUGS (3)
  1. PHENYTOIN [Suspect]
  2. LEVETIRACETAM [Concomitant]
     Indication: CONVULSION
  3. PIRACETAM [Concomitant]
     Indication: MYOCLONIC EPILEPSY

REACTIONS (3)
  - ANTICONVULSANT DRUG LEVEL DECREASED [None]
  - ANTICONVULSANT DRUG LEVEL INCREASED [None]
  - GASTROSTOMY TUBE INSERTION [None]
